FAERS Safety Report 5456808-7 (Version None)
Quarter: 2007Q3

REPORT INFORMATION
  Report Type: 
  Country: None (occurrence: None)
  Receive Date: 20070918
  Receipt Date: 20070228
  Transmission Date: 20080115
  Serious: No
  Sender: FDA-Public Use
  Company Number: US-ASTRAZENECA-2006UW26382

PATIENT
  Age: 430 Month
  Sex: Male
  Weight: 72.7 kg

DRUGS (1)
  1. SEROQUEL [Suspect]
     Indication: MENTAL DISORDER
     Dosage: 300-500 MG
     Route: 048
     Dates: start: 20040901, end: 20060625

REACTIONS (2)
  - DIABETIC COMPLICATION [None]
  - TYPE 2 DIABETES MELLITUS [None]
